FAERS Safety Report 6699983-9 (Version None)
Quarter: 2010Q2

REPORT INFORMATION
  Report Type: 
  Country: None (occurrence: None)
  Receive Date: 20100428
  Receipt Date: 20100419
  Transmission Date: 20101027
  Serious: Yes (Hospitalization, Other)
  Sender: FDA-Public Use
  Company Number: PHHY2010JP07703

PATIENT
  Sex: Male

DRUGS (1)
  1. ZADITEN [Suspect]
     Indication: DERMATITIS ATOPIC
     Dosage: DAILY
     Route: 048
     Dates: end: 20060301

REACTIONS (14)
  - ABNORMAL BEHAVIOUR [None]
  - ALTERED STATE OF CONSCIOUSNESS [None]
  - AMNESIA [None]
  - ASTHENIA [None]
  - ATONIC SEIZURES [None]
  - COGNITIVE DISORDER [None]
  - EPILEPSY [None]
  - EYE ROLLING [None]
  - FRONTAL LOBE EPILEPSY [None]
  - MUSCLE RIGIDITY [None]
  - RESTLESSNESS [None]
  - SYNCOPE [None]
  - UNRESPONSIVE TO STIMULI [None]
  - WHITE BLOOD CELL COUNT INCREASED [None]
